FAERS Safety Report 7059389-X (Version None)
Quarter: 2010Q4

REPORT INFORMATION
  Report Type: 
  Country: None (occurrence: None)
  Receive Date: 20101025
  Receipt Date: 20101008
  Transmission Date: 20110411
  Serious: Yes (Hospitalization, Other)
  Sender: FDA-Public Use
  Company Number: US-BAYER-201029340NA

PATIENT
  Age: 21 Year
  Sex: Female
  Weight: 66 kg

DRUGS (5)
  1. YAZ [Suspect]
     Indication: ORAL CONTRACEPTION
     Dosage: THE PATIENT RECEIVED YAZ SAMPLES IN 2005/2006
     Route: 048
     Dates: end: 20080601
  2. NEURONTIN [Concomitant]
     Indication: FIBROMYALGIA
     Dates: start: 20020101
  3. MAXAIR [Concomitant]
     Indication: ASTHMA
     Dates: start: 20030101
  4. MIDRIN [Concomitant]
     Indication: MIGRAINE
     Dates: start: 20010101, end: 20060101
  5. PERCOCET [Concomitant]
     Indication: FIBROMYALGIA
     Dates: start: 20060101

REACTIONS (4)
  - CHOLELITHIASIS [None]
  - GASTROINTESTINAL DISORDER [None]
  - PORTAL VEIN THROMBOSIS [None]
  - POST CHOLECYSTECTOMY SYNDROME [None]
